FAERS Safety Report 4866373-0 (Version None)
Quarter: 2005Q4

REPORT INFORMATION
  Report Type: 
  Country: None (occurrence: None)
  Receive Date: 20051227
  Receipt Date: 20050920
  Transmission Date: 20060501
  Serious: Yes (Hospitalization)
  Sender: FDA-Public Use
  Company Number: US-MERCK-0509USA03106

PATIENT
  Age: 61 Year
  Sex: Male
  Weight: 73 kg

DRUGS (4)
  1. VIOXX [Suspect]
     Indication: ARTHRITIS
     Route: 048
     Dates: start: 20010601, end: 20010801
  2. VIOXX [Suspect]
     Route: 048
     Dates: start: 20010901, end: 20020801
  3. VIOXX [Suspect]
     Route: 048
     Dates: start: 20010628, end: 20030101
  4. LOTREL [Concomitant]
     Indication: HYPERTENSION
     Route: 065
     Dates: start: 20000101, end: 20050101

REACTIONS (5)
  - CEREBROVASCULAR ACCIDENT [None]
  - DEHYDRATION [None]
  - EPISTAXIS [None]
  - HEADACHE [None]
  - VENTRICULAR HYPERTROPHY [None]
